FAERS Safety Report 4918477-1 (Version None)
Quarter: 2006Q1

REPORT INFORMATION
  Report Type: 
  Country: None (occurrence: None)
  Receive Date: 20060222
  Receipt Date: 20060213
  Transmission Date: 20060701
  Serious: Yes (Death, Hospitalization)
  Sender: FDA-Public Use
  Company Number: US-JNJFOC-20051002162

PATIENT
  Sex: Male

DRUGS (1)
  1. REGRANEX [Suspect]
     Route: 065

REACTIONS (4)
  - ABDOMINAL PAIN [None]
  - NAUSEA [None]
  - SUDDEN DEATH [None]
  - VOMITING [None]
